FAERS Safety Report 24351432 (Version 1)
Quarter: 2024Q3

REPORT INFORMATION
  Report Type: Report from Study
  Country: US (occurrence: US)
  Receive Date: 20240923
  Receipt Date: 20240923
  Transmission Date: 20241016
  Serious: No
  Sender: ROCHE
  Company Number: US-ROCHE-2932556

PATIENT
  Age: 59 Year
  Sex: Male

DRUGS (10)
  1. HERCEPTIN [Suspect]
     Active Substance: TRASTUZUMAB
     Indication: Squamous cell carcinoma of skin
     Dosage: LOADING DOSE
     Route: 041
  2. HERCEPTIN [Suspect]
     Active Substance: TRASTUZUMAB
     Indication: Lymphoma
     Route: 041
  3. HERCEPTIN [Suspect]
     Active Substance: TRASTUZUMAB
     Indication: Malignant neoplasm of unknown primary site
     Dosage: DATE OF TREATMENT: 26/AUG/2021,05/AUG/2021,13/JUL/2021,22/JUN/2021, 28/MAY/2021, DATE OF SERVICE:16/
     Route: 041
  4. DEXAMETHASONE [Concomitant]
     Active Substance: DEXAMETHASONE
  5. ONDANSETRON [Concomitant]
     Active Substance: ONDANSETRON
  6. ZOLPIDEM [Concomitant]
     Active Substance: ZOLPIDEM TARTRATE
  7. XARELTO [Concomitant]
     Active Substance: RIVAROXABAN
  8. OMEPRAZOLE [Concomitant]
     Active Substance: OMEPRAZOLE
  9. FLONASE [Concomitant]
     Active Substance: FLUTICASONE PROPIONATE
  10. LORATADINE [Concomitant]
     Active Substance: LORATADINE

REACTIONS (2)
  - Off label use [Unknown]
  - No adverse event [Unknown]
